FAERS Safety Report 6507517-4 (Version None)
Quarter: 2009Q4

REPORT INFORMATION
  Report Type: 
  Country: None (occurrence: None)
  Receive Date: 20091221
  Receipt Date: 20091120
  Transmission Date: 20100525
  Serious: No
  Sender: FDA-Public Use
  Company Number: US-BAYER-200941265NA

PATIENT
  Age: 36 Year
  Sex: Female
  Weight: 113 kg

DRUGS (2)
  1. MIRENA [Suspect]
     Indication: CONTRACEPTION
     Route: 015
     Dates: start: 20080701
  2. NITROFURANTOIN-MACRO [Concomitant]
     Indication: URINARY TRACT INFECTION

REACTIONS (2)
  - HYPOMENORRHOEA [None]
  - URINARY TRACT INFECTION [None]
